FAERS Safety Report 7361035-2 (Version None)
Quarter: 2011Q1

REPORT INFORMATION
  Report Type: 
  Country: None (occurrence: None)
  Receive Date: 20110318
  Receipt Date: 20110315
  Transmission Date: 20110831
  Serious: Yes (Hospitalization, Other)
  Sender: FDA-Public Use
  Company Number: NL-PFIZER INC-2011057404

PATIENT
  Age: 69 Year
  Sex: Male

DRUGS (10)
  1. SIMVASTATIN [Concomitant]
     Dosage: 10 MG, UNK
     Dates: start: 20020201
  2. CLOPIDOGREL [Concomitant]
     Dosage: 75 MG, UNK
     Dates: start: 20011221
  3. TRIAMTERENE [Concomitant]
     Dosage: 50 MG, UNK
     Dates: start: 20080718
  4. EPLERENONE [Suspect]
     Indication: CARDIAC FAILURE
     Dosage: 25 MG, 2X/DAY
     Dates: start: 20101028, end: 20101220
  5. ACENOCOUMAROL [Concomitant]
     Dosage: 1 MG, UNK
     Dates: start: 20081105
  6. PERINDOPRIL ARGININE [Concomitant]
     Dosage: 5 MG, UNK
     Dates: start: 20080828
  7. DIGOXIN [Suspect]
     Dosage: 0.125 MG, UNK
     Dates: start: 20101210, end: 20101220
  8. FUROSEMIDE [Concomitant]
     Dosage: 40 MG, UNK
     Dates: start: 20071210
  9. AMLODIPINE [Concomitant]
     Dosage: 5 MG, UNK
     Dates: start: 20100526
  10. SOTALOL HCL [Suspect]
     Dosage: 40 MG, UNK
     Dates: start: 20101202, end: 20101220

REACTIONS (3)
  - DIZZINESS [None]
  - RENAL FAILURE ACUTE [None]
  - BRADYCARDIA [None]
